FAERS Safety Report 7821850-5 (Version None)
Quarter: 2011Q4

REPORT INFORMATION
  Report Type: 
  Country: None (occurrence: None)
  Receive Date: 20111018
  Receipt Date: 20110304
  Transmission Date: 20120403
  Serious: No
  Sender: FDA-Public Use
  Company Number: US-ASTRAZENECA-2011SE12475

PATIENT
  Age: 16595 Day
  Sex: Female
  Weight: 63.5 kg

DRUGS (4)
  1. BYSTOLIC [Concomitant]
     Indication: HYPERTENSION
  2. MICONAZOLE [Concomitant]
  3. SYMBICORT [Suspect]
     Indication: ASTHMA
     Dosage: 80/4.5 2 PUFFS DAILY
     Route: 055
     Dates: start: 20100902, end: 20110211
  4. SINGULAIR [Concomitant]
     Indication: ASTHMA

REACTIONS (1)
  - VULVOVAGINAL MYCOTIC INFECTION [None]
